FAERS Safety Report 8825611 (Version 5)
Quarter: 2014Q1

REPORT INFORMATION
  Report Type: Spontaneous
  Country: US (occurrence: US)
  Receive Date: 20121004
  Receipt Date: 20140102
  Transmission Date: 20141002
  Serious: Yes (Hospitalization, Disabling, Other)
  Sender: FDA-Public Use
  Company Number: US-009507513-1205USA00961

PATIENT
  Sex: Female
  Weight: 46.26 kg

DRUGS (6)
  1. FOSAMAX [Suspect]
     Indication: OSTEOPOROSIS
     Dosage: 10 MG, QD
     Route: 048
     Dates: start: 19990925, end: 20080323
  2. FOSAMAX [Suspect]
     Indication: OSTEOPOROSIS
     Dosage: 10 MG, QD
     Route: 048
     Dates: start: 20080427, end: 20090416
  3. FOSAMAX [Suspect]
     Dosage: 70 MG, QW
     Route: 048
     Dates: start: 20090517, end: 20100227
  4. FOSAMAX PLUS D [Suspect]
     Dosage: UNK
     Route: 048
     Dates: start: 2003, end: 201003
  5. ZOMETA [Suspect]
     Indication: OSTEOPOROSIS
  6. VITAMIN D (UNSPECIFIED) [Concomitant]
     Dosage: 400 DF, UNK
     Dates: start: 201003

REACTIONS (19)
  - Open reduction of fracture [Recovered/Resolved]
  - Low turnover osteopathy [Not Recovered/Not Resolved]
  - Femur fracture [Recovered/Resolved]
  - Affective disorder [Unknown]
  - Joint range of motion decreased [Unknown]
  - Hypertension [Unknown]
  - Fall [Unknown]
  - Hormone replacement therapy [Unknown]
  - Tympanic membrane perforation [Unknown]
  - Otitis media [Recovered/Resolved]
  - Liver function test abnormal [Recovered/Resolved]
  - Pruritus [Unknown]
  - Vomiting [Unknown]
  - Nausea [Unknown]
  - Rash pruritic [Not Recovered/Not Resolved]
  - Arthralgia [Unknown]
  - Rash [Unknown]
  - Headache [Unknown]
  - Gastrooesophageal reflux disease [Unknown]
